FAERS Safety Report 6771645-9 (Version None)
Quarter: 2010Q2

REPORT INFORMATION
  Report Type: 
  Country: None (occurrence: None)
  Receive Date: 20100616
  Receipt Date: 20100602
  Transmission Date: 20101027
  Serious: Yes (Hospitalization)
  Sender: FDA-Public Use
  Company Number: ES-CELGENEUS-144-50794-10060486

PATIENT
  Age: 71 Year
  Sex: Male

DRUGS (2)
  1. VIDAZA [Suspect]
     Route: 050
     Dates: start: 20100111, end: 20100524
  2. ANTI-DIABETICS [Concomitant]
     Route: 048

REACTIONS (5)
  - FEBRILE NEUTROPENIA [None]
  - HAEMATOMA [None]
  - PNEUMONIA [None]
  - THROMBOCYTOSIS [None]
  - VOMITING [None]
